FAERS Safety Report 4876145-9 (Version None)
Quarter: 2006Q1

REPORT INFORMATION
  Report Type: 
  Country: None (occurrence: None)
  Receive Date: 20060106
  Receipt Date: 20051228
  Transmission Date: 20060701
  Serious: Yes (Other)
  Sender: FDA-Public Use
  Company Number: 200515212BCC

PATIENT
  Age: 17 Year
  Sex: Female
  Weight: 47.6277 kg

DRUGS (1)
  1. ALEVE [Suspect]
     Indication: TOOTHACHE
     Dosage: 880 MG, TOTAL DAILY, ORAL
     Route: 048
     Dates: start: 20051226

REACTIONS (4)
  - BLOOD GLUCOSE INCREASED [None]
  - HYPOTENSION [None]
  - LOSS OF CONSCIOUSNESS [None]
  - ORAL INTAKE REDUCED [None]
